FAERS Safety Report 25652613 (Version 1)
Quarter: 2025Q3

REPORT INFORMATION
  Report Type: Spontaneous
  Country: US (occurrence: US)
  Receive Date: 20250807
  Receipt Date: 20250807
  Transmission Date: 20251021
  Serious: Yes (Other)
  Sender: SANDOZ
  Company Number: US-002147023-NVSC2023US207848

PATIENT
  Sex: Female

DRUGS (19)
  1. KISQALI [Suspect]
     Active Substance: RIBOCICLIB SUCCINATE
     Indication: Breast cancer metastatic
     Dosage: 600 MG, QD
     Route: 065
     Dates: start: 202009
  2. KISQALI [Suspect]
     Active Substance: RIBOCICLIB SUCCINATE
     Indication: Human epidermal growth factor receptor negative
  3. KISQALI [Suspect]
     Active Substance: RIBOCICLIB SUCCINATE
     Indication: Metastases to bone
  4. ZOMETA [Suspect]
     Active Substance: ZOLEDRONIC ACID
     Indication: Human epidermal growth factor receptor negative
     Dosage: UNK, Q3MO
     Route: 065
     Dates: start: 201705
  5. ZOMETA [Suspect]
     Active Substance: ZOLEDRONIC ACID
     Indication: Metastases to bone
     Dosage: UNK, Q3MO
     Route: 065
     Dates: start: 20210114, end: 20220118
  6. ZOMETA [Suspect]
     Active Substance: ZOLEDRONIC ACID
     Indication: Metastases to bone
  7. ANASTROZOLE [Concomitant]
     Active Substance: ANASTROZOLE
     Indication: Breast cancer metastatic
     Dosage: UNK, Q3MO
     Route: 065
     Dates: start: 201705, end: 201807
  8. ANASTROZOLE [Concomitant]
     Active Substance: ANASTROZOLE
     Indication: Human epidermal growth factor receptor negative
  9. ANASTROZOLE [Concomitant]
     Active Substance: ANASTROZOLE
     Indication: Metastases to bone
  10. FASLODEX [Concomitant]
     Active Substance: FULVESTRANT
     Indication: Breast cancer metastatic
     Route: 065
     Dates: start: 20230627
  11. FASLODEX [Concomitant]
     Active Substance: FULVESTRANT
     Indication: Human epidermal growth factor receptor negative
  12. FASLODEX [Concomitant]
     Active Substance: FULVESTRANT
     Indication: Metastases to bone
  13. IBRANCE [Concomitant]
     Active Substance: PALBOCICLIB
     Route: 065
     Dates: start: 202208
  14. IBRANCE [Concomitant]
     Active Substance: PALBOCICLIB
     Indication: Breast cancer metastatic
     Route: 065
     Dates: start: 202110
  15. IBRANCE [Concomitant]
     Active Substance: PALBOCICLIB
     Route: 065
     Dates: start: 20220118
  16. IBRANCE [Concomitant]
     Active Substance: PALBOCICLIB
     Dosage: 75 MG, QID, REFILLS ALLOWED: 3 REFILLS NOTE TO PHARMACY: FOLLOWED BY 7 DAYS OFF
     Route: 065
     Dates: start: 20230627
  17. LETROZOLE [Concomitant]
     Active Substance: LETROZOLE
     Indication: Breast cancer metastatic
     Dosage: 10 MG, QD, 2.5 MG, QID
     Route: 065
     Dates: start: 201807, end: 202009
  18. LETROZOLE [Concomitant]
     Active Substance: LETROZOLE
     Indication: Human epidermal growth factor receptor negative
  19. LETROZOLE [Concomitant]
     Active Substance: LETROZOLE
     Indication: Metastases to bone

REACTIONS (8)
  - Metastatic neoplasm [Unknown]
  - Bone lesion [Unknown]
  - Deep vein thrombosis [Unknown]
  - Neutropenia [Unknown]
  - Femur fracture [Unknown]
  - Pancytopenia [Recovering/Resolving]
  - Vitiligo [Unknown]
  - Arthralgia [Unknown]

NARRATIVE: CASE EVENT DATE: 20230501
